FAERS Safety Report 6222219-X (Version None)
Quarter: 2009Q2

REPORT INFORMATION
  Report Type: 
  Country: None (occurrence: None)
  Receive Date: 20090611
  Receipt Date: 20090602
  Transmission Date: 20091009
  Serious: Yes (Hospitalization)
  Sender: FDA-Public Use
  Company Number: PHHY2009GB21146

PATIENT
  Sex: Female

DRUGS (5)
  1. CLOZARIL [Suspect]
     Indication: SCHIZOPHRENIA
     Dosage: 550 MG/DAY
     Route: 048
     Dates: start: 20030908, end: 20090517
  2. CLOZARIL [Suspect]
     Dosage: UNK
     Dates: start: 20090529
  3. HALOPERIDOL [Concomitant]
  4. MORPHINE [Concomitant]
  5. MIDAZOLAM HCL [Concomitant]
     Dosage: UNK

REACTIONS (2)
  - AGGRESSION [None]
  - RESPIRATORY FAILURE [None]
